FAERS Safety Report 15409136 (Version 2)
Quarter: 2018Q4

REPORT INFORMATION
  Report Type: Report from Study
  Country: IL (occurrence: IL)
  Receive Date: 20180920
  Receipt Date: 20181001
  Transmission Date: 20190204
  Serious: Yes (Other)
  Sender: FDA-Public Use
  Company Number: IL-SA-2018SA259414

PATIENT
  Age: 71 Year
  Sex: Female

DRUGS (3)
  1. TOUJEO [Suspect]
     Active Substance: INSULIN GLARGINE
     Dosage: 42 U, HS
     Route: 065
  2. NO STUDY DRUG GIVEN [Suspect]
     Active Substance: UNSPECIFIED INGREDIENT
  3. APIDRA [Suspect]
     Active Substance: INSULIN GLULISINE
     Dosage: 20-26 UNITS
     Route: 065

REACTIONS (2)
  - Bone cancer [Not Recovered/Not Resolved]
  - Hyperglycaemia [Not Recovered/Not Resolved]
